FAERS Safety Report 23942808 (Version 3)
Quarter: 2024Q2

REPORT INFORMATION
  Report Type: Spontaneous
  Country: NO (occurrence: NO)
  Receive Date: 20240605
  Receipt Date: 20240620
  Transmission Date: 20240715
  Serious: Yes (Death, Other)
  Sender: FDA-Public Use
  Company Number: NO-DSJP-DSE-2024-125052

PATIENT
  Age: 40 Year
  Sex: Female

DRUGS (3)
  1. ENHERTU [Suspect]
     Active Substance: FAM-TRASTUZUMAB DERUXTECAN-NXKI
     Indication: HER2 low breast cancer
     Dosage: 5.4 MG/KG, CYCLIC
     Route: 065
     Dates: start: 202305
  2. ENHERTU [Suspect]
     Active Substance: FAM-TRASTUZUMAB DERUXTECAN-NXKI
     Indication: Breast cancer metastatic
     Dosage: 5.4 MG/KG, CYCLIC
     Route: 065
  3. PALLIATIVE MEDICATION [Concomitant]
     Indication: Product used for unknown indication
     Dosage: UNK (VARYING DOSES)
     Route: 065

REACTIONS (2)
  - Hepatic failure [Fatal]
  - General physical health deterioration [Unknown]
